FAERS Safety Report 6278743-7 (Version None)
Quarter: 2009Q3

REPORT INFORMATION
  Report Type: 
  Country: None (occurrence: None)
  Receive Date: 20090721
  Receipt Date: 20090715
  Transmission Date: 20100115
  Serious: Yes (Other)
  Sender: FDA-Public Use
  Company Number: 2008AL007105

PATIENT
  Age: 56 Year
  Sex: Male
  Weight: 61.2356 kg

DRUGS (3)
  1. DIGOXIN [Suspect]
     Indication: ATRIAL FIBRILLATION
     Dosage: 0.125MG, DAILY, PO
     Route: 048
     Dates: start: 20080406, end: 20080506
  2. LEXAPRO [Concomitant]
  3. ZOCOR [Concomitant]

REACTIONS (8)
  - CARDIAC ENZYMES INCREASED [None]
  - DIZZINESS [None]
  - FALL [None]
  - FRACTURED COCCYX [None]
  - HYPERVENTILATION [None]
  - LOSS OF CONSCIOUSNESS [None]
  - MIDDLE INSOMNIA [None]
  - MUSCLE SPASMS [None]
